FAERS Safety Report 18569642 (Version 1)
Quarter: 2020Q4

REPORT INFORMATION
  Report Type: Report from Study
  Country: DE (occurrence: DE)
  Receive Date: 20201202
  Receipt Date: 20201202
  Transmission Date: 20210114
  Serious: Yes (Other)
  Sender: FDA-Public Use
  Company Number: DE-MYLANLABS-2020M1057837

PATIENT
  Sex: Female
  Weight: 52.4 kg

DRUGS (4)
  1. FULVESTRANT. [Suspect]
     Active Substance: FULVESTRANT
     Dosage: 500 MILLIGRAM, Q2W
     Route: 030
     Dates: start: 20200518
  2. KISQALI [Suspect]
     Active Substance: RIBOCICLIB
     Indication: BREAST CANCER METASTATIC
     Dosage: UNK
     Route: 065
     Dates: start: 20200518
  3. FULVESTRANT. [Suspect]
     Active Substance: FULVESTRANT
     Indication: BREAST CANCER METASTATIC
     Dosage: 500 MG, QD
     Route: 030
     Dates: start: 20200518
  4. MAGNESIUM [Concomitant]
     Active Substance: MAGNESIUM
     Indication: PALPITATIONS
     Dosage: UNK
     Dates: start: 20200803

REACTIONS (4)
  - Neutropenia [Recovered/Resolved]
  - Palpitations [Recovered/Resolved]
  - Hot flush [Not Recovered/Not Resolved]
  - Fatigue [Not Recovered/Not Resolved]

NARRATIVE: CASE EVENT DATE: 20200524
